FAERS Safety Report 6979441-4 (Version None)
Quarter: 2010Q3

REPORT INFORMATION
  Report Type: 
  Country: None (occurrence: None)
  Receive Date: 20100908
  Receipt Date: 20100827
  Transmission Date: 20110219
  Serious: Yes (Hospitalization, Other)
  Sender: FDA-Public Use
  Company Number: 016324

PATIENT
  Age: 75 Year
  Sex: Male

DRUGS (1)
  1. NEUPRO [Suspect]
     Dosage: (16 MG, 2 X 8 MG PATCHES TRANSDERMAL)
     Route: 062

REACTIONS (8)
  - CONSTIPATION [None]
  - MALABSORPTION [None]
  - PNEUMONIA ASPIRATION [None]
  - PRODUCT ADHESION ISSUE [None]
  - PRODUCT QUALITY ISSUE [None]
  - PYREXIA [None]
  - SEBORRHOEA [None]
  - UNEVALUABLE EVENT [None]
